FAERS Safety Report 9165503 (Version 1)
Quarter: 2013Q1

REPORT INFORMATION
  Report Type: Spontaneous
  Country: US (occurrence: None)
  Receive Date: 20130301
  Receipt Date: 20130301
  Transmission Date: 20140127
  Serious: Yes (Other)
  Sender: FDA-Public Use
  Company Number: 2013SA017610

PATIENT
  Age: 33 Year
  Sex: Female

DRUGS (1)
  1. ICY HOT / UNKNOWN / UNKNO WN [Suspect]
     Dates: start: 20130217

REACTIONS (2)
  - Application site burn [None]
  - Application site vesicles [None]
